FAERS Safety Report 8888878 (Version 3)
Quarter: 2012Q4

REPORT INFORMATION
  Report Type: 
  Country: US (occurrence: US)
  Receive Date: 20121106
  Receipt Date: 20121213
  Transmission Date: 20130627
  Serious: Yes (Hospitalization, Other)
  Sender: FDA-Public Use
  Company Number: PHEH2012US021785

PATIENT
  Age: 57 Year
  Sex: Female
  Weight: 72.56 kg

DRUGS (15)
  1. GILENYA [Suspect]
     Indication: MULTIPLE SCLEROSIS
     Dosage: 0.5 mg, QD
     Route: 048
     Dates: start: 20120416, end: 20121022
  2. RITALIN [Concomitant]
     Dosage: 20 mg, BID
  3. GABAPENTIN [Concomitant]
     Dosage: 300 mg, BID
  4. VENLAFAXINE [Concomitant]
     Dosage: 37.5 mg, BID
  5. DONEPEZIL [Concomitant]
     Dosage: 10 mg, UNK
  6. ASPIRIN [Concomitant]
     Dosage: 81 mg, QD
  7. VALIUM [Concomitant]
     Dosage: 2 mg, TID
  8. ALENDRONATE [Concomitant]
     Dosage: 35 mg, QW
  9. METFORMIN [Concomitant]
     Dosage: 1000 mg, BID
  10. OMEPRAZOLE [Concomitant]
     Dosage: 20 mg, QD
  11. VIT D [Concomitant]
     Dosage: 3000 U, QD
  12. NAPROXEN [Concomitant]
     Dosage: 220 mg, PRN
  13. COENZYME Q10 [Concomitant]
     Dosage: 100 mg, QD
  14. PHYSICAL THERAPY [Concomitant]
  15. ROCEPHIN [Concomitant]

REACTIONS (35)
  - Hypotonia [Recovered/Resolved]
  - Gait disturbance [Recovering/Resolving]
  - Meningitis viral [Recovered/Resolved]
  - Escherichia urinary tract infection [Recovered/Resolved]
  - Pyrexia [Recovering/Resolving]
  - Malaise [Recovered/Resolved]
  - Blood potassium decreased [Recovered/Resolved]
  - Heart rate irregular [Recovered/Resolved]
  - CSF neutrophil count increased [Unknown]
  - Red blood cells CSF positive [Unknown]
  - Peroneal nerve palsy [Recovering/Resolving]
  - Type 2 diabetes mellitus [Unknown]
  - Convulsion [Unknown]
  - Pupils unequal [Unknown]
  - CSF monocyte count decreased [Unknown]
  - Calcium ionised decreased [Unknown]
  - Confusional state [Unknown]
  - Feeling hot [Unknown]
  - Bilirubin conjugated increased [Unknown]
  - Coordination abnormal [Unknown]
  - Dysarthria [Unknown]
  - Electroencephalogram abnormal [Recovering/Resolving]
  - Blood culture positive [Unknown]
  - Granulocyte count increased [Unknown]
  - CSF white blood cell count increased [Unknown]
  - CSF lymphocyte count abnormal [Unknown]
  - Blood glucose increased [Unknown]
  - Hypotension [Unknown]
  - Appetite disorder [Unknown]
  - Urine analysis abnormal [Unknown]
  - Aphasia [Unknown]
  - Flushing [Unknown]
  - Aspartate aminotransferase increased [Unknown]
  - Asthenia [Unknown]
  - Blood alkaline phosphatase increased [Unknown]
